FAERS Safety Report 5350804-6 (Version None)
Quarter: 2007Q2

REPORT INFORMATION
  Report Type: 
  Country: None (occurrence: None)
  Receive Date: 20070606
  Receipt Date: 20070606
  Transmission Date: 20071010
  Serious: Yes (Other)
  Sender: FDA-Public Use
  Company Number: None

PATIENT
  Age: 48 Year
  Sex: Female
  Weight: 56.246 kg

DRUGS (1)
  1. CARAFATE [Suspect]
     Dosage: 2 TEASPOONS BEFORE MEALS + BED PO
     Route: 048
     Dates: start: 20070530, end: 20070605

REACTIONS (1)
  - MIGRAINE [None]
